FAERS Safety Report 20113111 (Version 1)
Quarter: 2021Q4

REPORT INFORMATION
  Report Type: Spontaneous
  Country: US (occurrence: None)
  Receive Date: 20211124
  Receipt Date: 20211124
  Transmission Date: 20220303
  Serious: Yes (Other)
  Sender: FDA-Public Use
  Company Number: None

PATIENT
  Age: 85 Year
  Sex: Female
  Weight: 53 kg

DRUGS (19)
  1. TEMOZOLOMIDE [Suspect]
     Active Substance: TEMOZOLOMIDE
     Indication: Breast cancer
     Dosage: FREQUENCY : DAILY;?
     Route: 048
     Dates: start: 20210904
  2. TEMOZOLOMIDE [Suspect]
     Active Substance: TEMOZOLOMIDE
     Indication: Lung neoplasm malignant
  3. TEMOZOLOMIDE [Suspect]
     Active Substance: TEMOZOLOMIDE
     Indication: Lung neoplasm malignant
     Dosage: FREQUENCY : DAILY;?
     Route: 048
     Dates: start: 20210904
  4. TEMOZOLOMIDE [Suspect]
     Active Substance: TEMOZOLOMIDE
     Indication: Breast cancer
  5. LORATADINE [Concomitant]
     Active Substance: LORATADINE
  6. hysrocortisone [Concomitant]
  7. LEVOTHYROXINE [Concomitant]
     Active Substance: LEVOTHYROXINE
  8. ONDANSETRON [Concomitant]
     Active Substance: ONDANSETRON
  9. PANTOPRAZOLE [Concomitant]
     Active Substance: PANTOPRAZOLE
  10. senna-docusate sodium [Concomitant]
  11. SIMVASTATIN [Concomitant]
     Active Substance: SIMVASTATIN
  12. fluticasone-salmeterol [Concomitant]
  13. MELATONIN [Concomitant]
     Active Substance: MELATONIN
  14. SENOKOT [Concomitant]
     Active Substance: SENNOSIDES
  15. VITAMINS [Concomitant]
     Active Substance: VITAMINS
  16. VITAMIN C [Concomitant]
     Active Substance: ASCORBIC ACID
  17. VITAMIN D [Concomitant]
     Active Substance: VITAMIN D NOS
  18. FISH OIL [Concomitant]
     Active Substance: FISH OIL
  19. calmag [Concomitant]

REACTIONS (3)
  - Rash [None]
  - Rash [None]
  - Rash pruritic [None]

NARRATIVE: CASE EVENT DATE: 20211124
